FAERS Safety Report 5861429-8 (Version None)
Quarter: 2008Q3

REPORT INFORMATION
  Report Type: 
  Country: None (occurrence: None)
  Receive Date: 20080827
  Receipt Date: 20080417
  Transmission Date: 20090109
  Serious: No
  Sender: FDA-Public Use
  Company Number: US-ABBOTT-08P-163-0447710-00

PATIENT
  Sex: Female
  Weight: 64.922 kg

DRUGS (10)
  1. COATED PDS [Suspect]
     Indication: BLOOD CHOLESTEROL INCREASED
     Route: 048
     Dates: start: 20080415
  2. COATED PDS [Suspect]
     Indication: HIGH DENSITY LIPOPROTEIN DECREASED
  3. LEVOTHYROXINE SODIUM [Concomitant]
     Indication: THYROIDECTOMY
  4. ANTACID TAB [Concomitant]
     Indication: GASTROOESOPHAGEAL REFLUX DISEASE
  5. AMITRIPTYLINE HYDROCHLORIDE [Concomitant]
     Indication: MIGRAINE
  6. CITALOPRAM HYDROBROMIDE [Concomitant]
     Indication: DEPRESSION
  7. ERGOCALCIFEROL [Concomitant]
     Indication: OSTEOPENIA
  8. CALCIUM [Concomitant]
     Indication: OSTEOPENIA
  9. PANTOPRAZOLE [Concomitant]
     Indication: GASTROOESOPHAGEAL REFLUX DISEASE
  10. TOPIRAMATE [Concomitant]
     Indication: MIGRAINE

REACTIONS (2)
  - PRURITUS [None]
  - RASH [None]
